FAERS Safety Report 12450267 (Version 1)
Quarter: 2016Q2

REPORT INFORMATION
  Report Type: Spontaneous
  Country: US (occurrence: None)
  Receive Date: 20160608
  Receipt Date: 20160608
  Transmission Date: 20160815
  Serious: No
  Sender: FDA-Public Use
  Company Number: None

PATIENT
  Age: 74 Year
  Sex: Female

DRUGS (1)
  1. REGORAFINIB [Suspect]
     Active Substance: REGORAFENIB

REACTIONS (7)
  - Bedridden [None]
  - Presyncope [None]
  - Nausea [None]
  - Tachycardia [None]
  - Oedema peripheral [None]
  - Hypotension [None]
  - Malignant ascites [None]

NARRATIVE: CASE EVENT DATE: 20160418
